FAERS Safety Report 9467463 (Version 2)
Quarter: 2013Q3

REPORT INFORMATION
  Report Type: Report from Study
  Country: US (occurrence: US)
  Receive Date: 20130821
  Receipt Date: 20130910
  Transmission Date: 20140515
  Serious: Yes (Hospitalization)
  Sender: FDA-Public Use
  Company Number: PHEH2013US017668

PATIENT
  Sex: Female
  Weight: 42 kg

DRUGS (2)
  1. TOBI PODHALER [Suspect]
     Indication: PSEUDOMONAS INFECTION
     Dosage: 112 MG, BID
  2. ANTIBIOTICS [Concomitant]
     Route: 042

REACTIONS (2)
  - Gastric disorder [Unknown]
  - Malaise [Unknown]
